FAERS Safety Report 19217565 (Version 2)
Quarter: 2021Q2

REPORT INFORMATION
  Report Type: Spontaneous
  Country: BR (occurrence: BR)
  Receive Date: 20210505
  Receipt Date: 20210510
  Transmission Date: 20210717
  Serious: No
  Sender: FDA-Public Use
  Company Number: BR-ORGANON-O2105BRA000162

PATIENT
  Age: 70 Year
  Sex: Female
  Weight: 65 kg

DRUGS (7)
  1. PURAN [Concomitant]
     Active Substance: LEVOTHYROXINE SODIUM
     Indication: HYPOTHYROIDISM
     Dosage: UNK
  2. VITAMIN D [VITAMIN D NOS] [Concomitant]
     Active Substance: VITAMIN D NOS
     Dosage: UNK, QW
  3. TREZOR [ROSUVASTATIN CALCIUM] [Concomitant]
     Active Substance: ROSUVASTATIN CALCIUM
     Indication: BLOOD CHOLESTEROL INCREASED
  4. NASONEX [Suspect]
     Active Substance: MOMETASONE FUROATE
     Dosage: UNK
     Dates: start: 2021
  5. PANTOPRAZOLE [Concomitant]
     Active Substance: PANTOPRAZOLE
     Indication: PROPHYLAXIS AGAINST GASTROINTESTINAL ULCER
  6. PREDNISONE. [Concomitant]
     Active Substance: PREDNISONE
     Indication: ADRENAL INSUFFICIENCY
  7. NASONEX [Suspect]
     Active Substance: MOMETASONE FUROATE
     Indication: SNEEZING
     Dosage: 4 DOSAGE FORM (2 JETS IN EACH NOSTRIL), BID
     Route: 045
     Dates: start: 20210208

REACTIONS (5)
  - Product odour abnormal [Unknown]
  - Anosmia [Unknown]
  - Nasal discomfort [Unknown]
  - Poor quality device used [Unknown]
  - Product physical issue [Unknown]

NARRATIVE: CASE EVENT DATE: 2021
